FAERS Safety Report 6781296-8 (Version None)
Quarter: 2010Q2

REPORT INFORMATION
  Report Type: 
  Country: None (occurrence: None)
  Receive Date: 20100621
  Receipt Date: 20100609
  Transmission Date: 20101027
  Serious: Yes (Other)
  Sender: FDA-Public Use
  Company Number: PHHY2010BE36862

PATIENT
  Sex: Female

DRUGS (4)
  1. SANDOSTATIN LAR [Suspect]
     Indication: ENTERITIS
     Dosage: 20 MG, UNK
     Route: 030
     Dates: start: 20081201, end: 20100601
  2. QUESTRAN [Concomitant]
  3. NORITA [Concomitant]
  4. IMODIUM [Concomitant]

REACTIONS (3)
  - LAPAROTOMY [None]
  - THROMBOCYTOPENIA [None]
  - WHITE BLOOD CELL COUNT DECREASED [None]
